FAERS Safety Report 9242589 (Version 1)
Quarter: 2013Q2

REPORT INFORMATION
  Report Type: Spontaneous
  Country: DE (occurrence: DE)
  Receive Date: 20130419
  Receipt Date: 20130419
  Transmission Date: 20140414
  Serious: Yes (Life-Threatening, Disabling)
  Sender: FDA-Public Use
  Company Number: DE-TEVA-396810GER

PATIENT
  Age: 65 Year
  Sex: Female
  Weight: 76 kg

DRUGS (1)
  1. AMIODARON [Suspect]
     Indication: ATRIAL FIBRILLATION
     Dosage: 200 MILLIGRAM DAILY;
     Route: 048
     Dates: start: 2006, end: 20091023

REACTIONS (3)
  - Acute respiratory distress syndrome [Recovered/Resolved with Sequelae]
  - Guillain-Barre syndrome [Unknown]
  - Pulmonary fibrosis [Recovered/Resolved with Sequelae]
